FAERS Safety Report 8744162 (Version 4)
Quarter: 2013Q1

REPORT INFORMATION
  Report Type: Spontaneous
  Country: US (occurrence: US)
  Receive Date: 20120824
  Receipt Date: 20130213
  Transmission Date: 20140127
  Serious: Yes (Other)
  Sender: FDA-Public Use
  Company Number: US-ASTRAZENECA-2012SE60326

PATIENT
  Age: 50 Year
  Sex: Female
  Weight: 83.5 kg

DRUGS (11)
  1. SEROQUEL XR [Suspect]
     Indication: TOURETTE^S DISORDER
     Route: 048
  2. SEROQUEL XR [Suspect]
     Indication: TOURETTE^S DISORDER
     Route: 048
     Dates: start: 201209, end: 201211
  3. KEPRA [Concomitant]
     Indication: TOURETTE^S DISORDER
     Dosage: 500-1000 MG XR
     Route: 048
  4. KEPRA [Concomitant]
     Indication: TOURETTE^S DISORDER
     Dosage: 1-2 TABLETS BY MOUTH EVERY 12 HOURS
     Route: 048
  5. KLONOPIN [Concomitant]
     Indication: ANXIETY
     Route: 048
  6. HALDOL [Concomitant]
     Indication: DEPRESSION
  7. HALDOL [Concomitant]
     Indication: DEPRESSION
  8. HALDOL [Concomitant]
     Indication: DEPRESSION
  9. ZOLOFT [Concomitant]
     Indication: DEPRESSION
  10. XENAZINE [Concomitant]
     Route: 048
  11. RESERPINE [Concomitant]

REACTIONS (11)
  - Tourette^s disorder [Recovering/Resolving]
  - Nasopharyngitis [Unknown]
  - Gait disturbance [Unknown]
  - Excoriation [Unknown]
  - Insomnia [Unknown]
  - Decreased appetite [Unknown]
  - Impaired work ability [Unknown]
  - Disturbance in social behaviour [Unknown]
  - Emotional disorder [Unknown]
  - Off label use [Unknown]
  - Drug ineffective for unapproved indication [Unknown]
